FAERS Safety Report 7093110-4 (Version None)
Quarter: 2010Q4

REPORT INFORMATION
  Report Type: 
  Country: None (occurrence: None)
  Receive Date: 20101110
  Receipt Date: 20101101
  Transmission Date: 20110411
  Serious: Yes (Other)
  Sender: FDA-Public Use
  Company Number: JP-BRISTOL-MYERS SQUIBB COMPANY-15371511

PATIENT

DRUGS (1)
  1. BARACLUDE [Suspect]
     Dosage: DURATION OF THERAPY:ABOUT 1 YEAR
     Route: 048

REACTIONS (2)
  - CEREBRAL HYPOPERFUSION [None]
  - FALL [None]
